FAERS Safety Report 7418279-0 (Version None)
Quarter: 2011Q2

REPORT INFORMATION
  Report Type: 
  Country: None (occurrence: None)
  Receive Date: 20110415
  Receipt Date: 20110412
  Transmission Date: 20111010
  Serious: Yes (Other)
  Sender: FDA-Public Use
  Company Number: US-ROXANE LABORATORIES, INC.-2011-RO-00505RO

PATIENT
  Age: 63 Year
  Sex: Male

DRUGS (3)
  1. TRAZODONE [Suspect]
     Dosage: 50 MG
  2. QUETIAPIEN [Suspect]
     Dosage: 300 MG
  3. OXCARBAZEPINE [Suspect]
     Dosage: 600 MG

REACTIONS (1)
  - DISEASE PROGRESSION [None]
